FAERS Safety Report 4530305-5 (Version None)
Quarter: 2004Q4

REPORT INFORMATION
  Report Type: 
  Country: None (occurrence: None)
  Receive Date: 20041216
  Receipt Date: 20041216
  Transmission Date: 20050328
  Serious: Yes (Hospitalization)
  Sender: FDA-Public Use
  Company Number: None

PATIENT
  Age: 51 Year
  Sex: Male
  Weight: 92.9874 kg

DRUGS (2)
  1. SULINDAC [Suspect]
     Indication: OSTEOARTHRITIS
     Dosage: 200MG   BID   ORAL
     Route: 048
     Dates: start: 20040519, end: 20040803
  2. TRAMADOL HCL [Concomitant]

REACTIONS (1)
  - RECTAL HAEMORRHAGE [None]
